FAERS Safety Report 4882822-6 (Version None)
Quarter: 2005Q4

REPORT INFORMATION
  Report Type: 
  Country: None (occurrence: None)
  Receive Date: 20051201
  Receipt Date: 20050918
  Transmission Date: 20060501
  Serious: No
  Sender: FDA-Public Use
  Company Number: 2005PV002184

PATIENT
  Age: 70 Year
  Sex: Female
  Weight: 63.05 kg

DRUGS (14)
  1. BYETTA [Suspect]
     Indication: DIABETES MELLITUS NON-INSULIN-DEPENDENT
     Dosage: SEE IMAGE
     Route: 058
     Dates: start: 20050801, end: 20050910
  2. BYETTA [Suspect]
     Indication: DIABETES MELLITUS NON-INSULIN-DEPENDENT
     Dosage: SEE IMAGE
     Route: 058
     Dates: start: 20050912, end: 20050915
  3. CATAPRES [Concomitant]
  4. PLAVIX [Concomitant]
  5. ACEON [Concomitant]
  6. FISH OIL [Concomitant]
  7. NORVASC [Concomitant]
  8. COLACE [Concomitant]
  9. MULTIVITAMIN [Concomitant]
  10. ZETIA [Concomitant]
  11. VYTORIN [Concomitant]
  12. COUMADIN [Concomitant]
  13. HUMULIN 70/30 [Concomitant]
  14. INNOLET [Concomitant]

REACTIONS (3)
  - INJECTION SITE BRUISING [None]
  - NAUSEA [None]
  - VOMITING [None]
